FAERS Safety Report 10904119 (Version 2)
Quarter: 2015Q2

REPORT INFORMATION
  Report Type: Spontaneous
  Country: FR (occurrence: None)
  Receive Date: 20150306
  Receipt Date: 20150402
  Transmission Date: 20150821
  Serious: Yes (Hospitalization)
  Sender: FDA-Public Use
  Company Number: 2015068678

PATIENT
  Age: 80 Year
  Sex: Female

DRUGS (9)
  1. AMOXICILLIN TRIHYDRATE, CLAVULANIC ACID SANDOZ (AMOXICILLIN TRIHYDRATE, CLAVULANIC ACID) POWDER FOR ORAL SOLUTION [Suspect]
     Active Substance: AMOXICILLIN\CLAVULANATE POTASSIUM
     Dosage: 1 DF, 3X/DAY, ORAL
     Route: 048
     Dates: start: 20141114, end: 20141124
  2. JAMYLENE (DANTHRON, DOCUSATE SODIUM) [Suspect]
     Active Substance: DANTHRON\DOCUSATE SODIUM
     Dosage: 2 DF, 2X/DAY, ORAL
     Route: 048
     Dates: start: 20141205, end: 20141211
  3. DUPHALAC (LACTULOSE) ORAL SOLUTION [Concomitant]
  4. KARDEGIC (ACETYSALICYLATE LYSINE) POWDER AND SOLVENT FOR ORAL SOLUTION [Concomitant]
  5. EUPANTOL [Suspect]
     Active Substance: PANTOPRAZOLE SODIUM
     Dosage: 40 MG, 1X/DAY, ORAL
     Route: 048
     Dates: start: 20141113, end: 20141211
  6. TAHOR [Suspect]
     Active Substance: ATORVASTATIN CALCIUM
     Dosage: 80 MG, 1X/DAY, ORAL
     Route: 048
     Dates: start: 20141113, end: 20141213
  7. FRAGMINE (DALTEPARIN SODIUM) SOLUTION FOR INJECTION [Suspect]
     Active Substance: DALTEPARIN SODIUM
     Dosage: 5000 IU, 1X/DAY, SUBCUTANEOUS
     Route: 058
     Dates: start: 20141113, end: 20141211
  8. DAFALGAN [Suspect]
     Active Substance: ACETAMINOPHEN
     Dosage: 1000 MG, 4X/DAY, ORAL
     Route: 048
     Dates: start: 20141114, end: 20141211
  9. AVLOCARDYL (PROPRANOLOL) TABLET [Concomitant]

REACTIONS (4)
  - Hepatitis cholestatic [None]
  - Haematuria [None]
  - Dysuria [None]
  - Pyrexia [None]

NARRATIVE: CASE EVENT DATE: 20141211
